FAERS Safety Report 5712369-6 (Version None)
Quarter: 2008Q2

REPORT INFORMATION
  Report Type: 
  Country: None (occurrence: None)
  Receive Date: 20080418
  Receipt Date: 20080327
  Transmission Date: 20081010
  Serious: Yes (Hospitalization)
  Sender: FDA-Public Use
  Company Number: 080307406

PATIENT
  Age: 2 Year
  Sex: Male

DRUGS (2)
  1. DELSYM [Suspect]
     Indication: ACCIDENTAL DRUG INTAKE BY CHILD
     Dosage: 1.5 OZ, X 1 DOSE, ORAL
     Route: 048
     Dates: start: 20080326, end: 20080326
  2. NONE (NONE) [Concomitant]

REACTIONS (6)
  - AGGRESSION [None]
  - DYSARTHRIA [None]
  - GAIT DISTURBANCE [None]
  - HALLUCINATION, VISUAL [None]
  - OVERDOSE [None]
  - VOMITING [None]
